FAERS Safety Report 7433839-9 (Version None)
Quarter: 2011Q2

REPORT INFORMATION
  Report Type: 
  Country: None (occurrence: None)
  Receive Date: 20110425
  Receipt Date: 20110413
  Transmission Date: 20111010
  Serious: No
  Sender: FDA-Public Use
  Company Number: US-BIOGENIDEC-2011BI014430

PATIENT
  Age: 53 Year
  Sex: Female

DRUGS (3)
  1. ADDERALL 10 [Concomitant]
     Indication: ASTHENIA
  2. IBUPROFEN [Concomitant]
     Indication: PREMEDICATION
  3. TYSABRI [Suspect]
     Indication: MULTIPLE SCLEROSIS
     Route: 042
     Dates: start: 20101026

REACTIONS (4)
  - FATIGUE [None]
  - RASH ERYTHEMATOUS [None]
  - DRUG EFFECT DECREASED [None]
  - JOINT LOCK [None]
